FAERS Safety Report 23833742 (Version 2)
Quarter: 2024Q2

REPORT INFORMATION
  Report Type: Spontaneous
  Country: US (occurrence: US)
  Receive Date: 20240509
  Receipt Date: 20240510
  Transmission Date: 20240716
  Serious: No
  Sender: FDA-Public Use
  Company Number: US-ABBVIE-5749592

PATIENT
  Age: 72 Year
  Sex: Female
  Weight: 44 kg

DRUGS (3)
  1. RESTASIS [Suspect]
     Active Substance: CYCLOSPORINE
     Indication: Dry eye
     Dosage: FORM STRENGTH: .05 MILLIGRAM
     Route: 047
     Dates: start: 2022, end: 20240429
  2. REFRESH CELLUVISC [Concomitant]
     Active Substance: CARBOXYMETHYLCELLULOSE SODIUM
     Indication: Dry eye
  3. LATANOPROST [Concomitant]
     Active Substance: LATANOPROST
     Indication: Eye disorder prophylaxis

REACTIONS (4)
  - Eye irritation [Recovered/Resolved]
  - Ocular discomfort [Recovered/Resolved]
  - Eye pain [Recovered/Resolved with Sequelae]
  - Ocular hyperaemia [Recovered/Resolved]

NARRATIVE: CASE EVENT DATE: 20240429
